FAERS Safety Report 5068141-6 (Version None)
Quarter: 2006Q3

REPORT INFORMATION
  Report Type: 
  Country: None (occurrence: None)
  Receive Date: 20060802
  Receipt Date: 20060704
  Transmission Date: 20061208
  Serious: Yes (Hospitalization, Other)
  Sender: FDA-Public Use
  Company Number: PE-BRISTOL-MYERS SQUIBB COMPANY-13432562

PATIENT
  Age: 45 Year
  Sex: Male

DRUGS (1)
  1. DASATINIB [Suspect]
     Indication: CHRONIC MYELOID LEUKAEMIA
     Dosage: INTERRUPT: 30JUN06 RESTART: 10JUL06
     Route: 048
     Dates: start: 20050613, end: 20050630

REACTIONS (2)
  - HAEMATOMA [None]
  - HAEMATOMA INFECTION [None]
